FAERS Safety Report 11777978 (Version 7)
Quarter: 2017Q4

REPORT INFORMATION
  Report Type: Spontaneous
  Country: US (occurrence: US)
  Receive Date: 20151125
  Receipt Date: 20171115
  Transmission Date: 20180320
  Serious: Yes (Hospitalization, Other)
  Sender: FDA-Public Use
  Company Number: US-VERTEX PHARMACEUTICALS-2015-005398

PATIENT
  Age: 39 Year
  Sex: Female

DRUGS (39)
  1. MAGNESIUM [Concomitant]
     Active Substance: MAGNESIUM
  2. CIPRO [Concomitant]
     Active Substance: CIPROFLOXACIN HYDROCHLORIDE
  3. ORKAMBI [Suspect]
     Active Substance: IVACAFTOR\LUMACAFTOR
     Dosage: 400/250 MG, BID
     Route: 048
     Dates: end: 2017
  4. LEVAQUIN [Concomitant]
     Active Substance: LEVOFLOXACIN
  5. BENADRYL [Concomitant]
     Active Substance: DIPHENHYDRAMINE HYDROCHLORIDE
  6. AZITHROMYCIN ANHYDROUS. [Concomitant]
     Active Substance: AZITHROMYCIN ANHYDROUS
  7. FLUOXETINE [Concomitant]
     Active Substance: FLUOXETINE HYDROCHLORIDE
  8. HYOSCYAMINE. [Concomitant]
     Active Substance: HYOSCYAMINE
  9. PROMETHAZINE [Concomitant]
     Active Substance: PROMETHAZINE\PROMETHAZINE HYDROCHLORIDE
  10. BUDESONIDE. [Concomitant]
     Active Substance: BUDESONIDE
  11. AQUADEKS [Concomitant]
     Active Substance: MINERALS\VITAMINS
  12. COLISTIMETHATE [Concomitant]
     Active Substance: COLISTIMETHATE SODIUM
  13. NARCAN [Concomitant]
     Active Substance: NALOXONE HYDROCHLORIDE
  14. ORKAMBI [Suspect]
     Active Substance: IVACAFTOR\LUMACAFTOR
     Dosage: 400/250 MG, BID
     Route: 048
     Dates: start: 201511, end: 20160224
  15. TOBI [Concomitant]
     Active Substance: TOBRAMYCIN
  16. BRISDELLE [Concomitant]
     Active Substance: PAROXETINE MESYLATE
  17. CAYSTON [Concomitant]
     Active Substance: AZTREONAM
  18. DEXTROAMPHET SACCHARAT, AMPHET ASPARTATE, DEXTROAMPHET SULFATE AND AMPHET SULFAT [Concomitant]
     Active Substance: AMPHETAMINE ASPARTATE\AMPHETAMINE SULFATE\DEXTROAMPHETAMINE SACCHARATE\DEXTROAMPHETAMINE SULFATE
  19. CHLORHEX [Concomitant]
  20. SMZ-TMP [Concomitant]
     Active Substance: SULFAMETHOXAZOLE\TRIMETHOPRIM
  21. TIZANIDINE. [Concomitant]
     Active Substance: TIZANIDINE
  22. OXYCODONE W/APAP [Concomitant]
     Active Substance: ACETAMINOPHEN\OXYCODONE HYDROCHLORIDE
  23. NACL [Concomitant]
     Active Substance: SODIUM CHLORIDE
  24. MEGESTROL [Concomitant]
     Active Substance: MEGESTROL
  25. ZENPEP [Concomitant]
     Active Substance: PANCRELIPASE AMYLASE\PANCRELIPASE LIPASE\PANCRELIPASE PROTEASE
  26. NORCO [Concomitant]
     Active Substance: ACETAMINOPHEN\HYDROCODONE BITARTRATE
  27. XANAX [Concomitant]
     Active Substance: ALPRAZOLAM
  28. PRENATAL [Concomitant]
     Active Substance: VITAMINS
  29. ORKAMBI [Suspect]
     Active Substance: IVACAFTOR\LUMACAFTOR
     Indication: CYSTIC FIBROSIS
     Dosage: 400/250 MG, BID
     Route: 048
     Dates: start: 20151028, end: 20151110
  30. ALBUTEROL. [Concomitant]
     Active Substance: ALBUTEROL
  31. CLINDAMYCIN. [Concomitant]
     Active Substance: CLINDAMYCIN
  32. VITAMIN D [Concomitant]
     Active Substance: CHOLECALCIFEROL
  33. RANITIDINE. [Concomitant]
     Active Substance: RANITIDINE
  34. PROAIR HFA [Concomitant]
     Active Substance: ALBUTEROL SULFATE
  35. HYDROCODONE BITARTRATE AND ACETAMINOPHEN [Concomitant]
     Active Substance: ACETAMINOPHEN\HYDROCODONE BITARTRATE
  36. AMOXICILLIN. [Concomitant]
     Active Substance: AMOXICILLIN
  37. BOOST [Concomitant]
     Active Substance: DIETARY SUPPLEMENT
  38. AMITRIPTYLINE [Concomitant]
     Active Substance: AMITRIPTYLINE
  39. FLUCONAZOLE. [Concomitant]
     Active Substance: FLUCONAZOLE

REACTIONS (10)
  - Respiration abnormal [Unknown]
  - Fatigue [Unknown]
  - Dizziness [Unknown]
  - Flatulence [Unknown]
  - Asthenia [Unknown]
  - Nasal congestion [Unknown]
  - Dyspnoea [Unknown]
  - Diarrhoea [Unknown]
  - Nausea [Unknown]
  - Hospitalisation [Not Recovered/Not Resolved]

NARRATIVE: CASE EVENT DATE: 20151028
